FAERS Safety Report 7104391-2 (Version None)
Quarter: 2010Q4

REPORT INFORMATION
  Report Type: 
  Country: None (occurrence: None)
  Receive Date: 20101115
  Receipt Date: 20100927
  Transmission Date: 20110411
  Serious: Yes (Hospitalization, Other)
  Sender: FDA-Public Use
  Company Number: US-AMGEN-KDL441947

PATIENT

DRUGS (18)
  1. PROCRIT [Suspect]
     Indication: RENAL FAILURE CHRONIC
     Dosage: 20000 IU, QWK
     Route: 058
     Dates: start: 20080101
  2. AMLODIPINE [Concomitant]
     Dosage: 5 MG, QD
     Route: 048
  3. FUROSEMIDE [Concomitant]
     Dosage: 40 MG, QD
     Route: 048
  4. CITRIC ACID [Concomitant]
     Dosage: UNK UNK, BID
     Route: 048
  5. INSULIN GLARGINE [Concomitant]
     Dosage: 10 IU, QD
     Dates: start: 20080101
  6. GABAPENTIN [Concomitant]
     Dosage: 400 ML, BID
     Route: 048
     Dates: start: 20000101
  7. PIOGLITAZONE HCL [Concomitant]
     Dosage: 15 MG, QD
     Route: 048
     Dates: start: 20000101
  8. ASPIRIN AND DIPYRIDAMOLE [Concomitant]
     Dosage: UNK UNK, BID
     Route: 048
  9. LOSARTAN POTASSIUM [Concomitant]
     Dosage: 25 MG, QD
     Route: 048
     Dates: start: 20000101
  10. TERAZOSIN HCL [Concomitant]
     Dosage: 1 MG, QD
     Route: 048
     Dates: start: 20080101
  11. SIMVASTATIN [Concomitant]
     Dosage: .5 MG, QD
     Route: 048
     Dates: start: 20080101
  12. FLUOXETINE HYDROCHLORIDE [Concomitant]
     Dosage: 10 MG, QD
     Route: 048
     Dates: start: 20080101
  13. COLECALCIFEROL [Concomitant]
     Dosage: 1000 MG, QD
     Route: 048
     Dates: start: 20080101
  14. FOLIC ACID [Concomitant]
     Dosage: 1000 MG, QD
     Route: 048
     Dates: start: 20050101
  15. CYANOCOBALAMIN [Concomitant]
     Dosage: 500 MG, QD
     Route: 048
     Dates: start: 20050101
  16. ASCORBIC ACID [Concomitant]
     Dosage: UNK UNK, QD
     Route: 048
     Dates: start: 20050101
  17. ONDANSETRON HYDROCHLORIDE [Concomitant]
     Dosage: 4 MG, PRN
     Route: 048
     Dates: start: 20090101
  18. GLYCERYL TRINITRATE [Concomitant]
     Dosage: .4 MG, PRN
     Route: 048
     Dates: start: 20060101

REACTIONS (2)
  - MALAISE [None]
  - PNEUMONIA [None]
